FAERS Safety Report 24536137 (Version 1)
Quarter: 2024Q4

REPORT INFORMATION
  Report Type: Other
  Country: US (occurrence: US)
  Receive Date: 20241022
  Receipt Date: 20241022
  Transmission Date: 20250114
  Serious: Yes (Death, Other)
  Sender: ZHEJIANG JINGXIN PHARMACEUTICAL
  Company Number: US-Zhejiang Jingxin Pharmaceutical Co., Ltd-2163545

PATIENT
  Sex: Male

DRUGS (2)
  1. LEVETIRACETAM [Suspect]
     Active Substance: LEVETIRACETAM
     Indication: Seizure
  2. METHOTREXATE [Interacting]
     Active Substance: METHOTREXATE

REACTIONS (9)
  - Acute kidney injury [Fatal]
  - Drug interaction [Unknown]
  - Skin atrophy [Unknown]
  - Rash erythematous [Unknown]
  - Stomatitis [Unknown]
  - Epidermal necrosis [Unknown]
  - Toxicity to various agents [Fatal]
  - Condition aggravated [Fatal]
  - Hepatic function abnormal [Fatal]
